FAERS Safety Report 25099735 (Version 1)
Quarter: 2025Q1

REPORT INFORMATION
  Report Type: Spontaneous
  Country: CA (occurrence: CA)
  Receive Date: 20250320
  Receipt Date: 20250320
  Transmission Date: 20250409
  Serious: Yes (Other)
  Sender: CHEPLAPHARM
  Company Number: CA-CHEPLA-2025003485

PATIENT
  Age: 49 Year
  Sex: Female

DRUGS (26)
  1. CAPECITABINE [Suspect]
     Active Substance: CAPECITABINE
  2. ENHERTU [Suspect]
     Active Substance: FAM-TRASTUZUMAB DERUXTECAN-NXKI
     Indication: Breast cancer metastatic
  3. TUKYSA [Suspect]
     Active Substance: TUCATINIB
  4. OLANZAPINE [Concomitant]
     Active Substance: OLANZAPINE
  5. OLANZAPINE [Concomitant]
     Active Substance: OLANZAPINE
  6. OLANZAPINE [Concomitant]
     Active Substance: OLANZAPINE
  7. ANASTROZOLE [Concomitant]
     Active Substance: ANASTROZOLE
     Dosage: DAILY DOSE: 1 MILLIGRAM
  8. DEXAMETHASONE [Concomitant]
     Active Substance: DEXAMETHASONE
     Dosage: DAILY DOSE: 4 MILLIGRAM
  9. DILANTIN [Concomitant]
     Active Substance: PHENYTOIN
  10. FUROSEMIDE [Concomitant]
     Active Substance: FUROSEMIDE
     Dosage: DAILY DOSE: 20 MILLIGRAM
  11. HALOPERIDOL DECANOATE [Concomitant]
     Active Substance: HALOPERIDOL DECANOATE
  12. LETROZOLE [Concomitant]
     Active Substance: LETROZOLE
  13. LOPERAMIDE [Concomitant]
     Active Substance: LOPERAMIDE
  14. LORAZEPAM [Concomitant]
     Active Substance: LORAZEPAM
     Dosage: DAILY DOSE: 1 MILLIGRAM
  15. MELATONIN [Concomitant]
     Active Substance: MELATONIN
     Dosage: DAILY DOSE: 3 MILLIGRAM
  16. METOCLOPRAMIDE [Concomitant]
     Active Substance: METOCLOPRAMIDE
  17. ONDANSETRON HYDROCHLORIDE [Concomitant]
     Active Substance: ONDANSETRON HYDROCHLORIDE
  18. ONDANSETRON HYDROCHLORIDE [Concomitant]
     Active Substance: ONDANSETRON HYDROCHLORIDE
  19. PANTOPRAZOLE SODIUM [Concomitant]
     Active Substance: PANTOPRAZOLE SODIUM
     Dosage: DAILY DOSE: 40 MILLIGRAM
  20. PHENYTOIN SODIUM [Concomitant]
     Active Substance: PHENYTOIN SODIUM
     Dosage: DAILY DOSE: 50 MILLIGRAM
  21. HIGH DENSITY POLYETHYLENE [Concomitant]
     Active Substance: HIGH DENSITY POLYETHYLENE
     Dosage: DAILY DOSE: 17 MILLIGRAM
  22. POTASSIUM CHLORIDE [Concomitant]
     Active Substance: POTASSIUM CHLORIDE
  23. GOSERELIN [Concomitant]
     Active Substance: GOSERELIN
  24. GOSERELIN [Concomitant]
     Active Substance: GOSERELIN
  25. GOSERELIN [Concomitant]
     Active Substance: GOSERELIN
  26. GOSERELIN [Concomitant]
     Active Substance: GOSERELIN

REACTIONS (6)
  - Asthenia [Unknown]
  - Confusional state [Unknown]
  - Fall [Unknown]
  - Hypercalcaemia [Unknown]
  - Malignant neoplasm progression [Unknown]
  - Metastases to liver [Unknown]
